FAERS Safety Report 7061766-8 (Version None)
Quarter: 2010Q4

REPORT INFORMATION
  Report Type: 
  Country: None (occurrence: None)
  Receive Date: 20101026
  Receipt Date: 20100907
  Transmission Date: 20110411
  Serious: No
  Sender: FDA-Public Use
  Company Number: US-BAYER-201021215BCC

PATIENT
  Age: 81 Year
  Sex: Female
  Weight: 54 kg

DRUGS (10)
  1. ALEVE (CAPLET) [Suspect]
     Indication: PAIN IN EXTREMITY
     Dosage: TOTAL DAILY DOSE: 220 MG  UNIT DOSE: 220 MG
     Route: 048
  2. ALEVE (CAPLET) [Suspect]
     Indication: PAIN IN EXTREMITY
     Dosage: TOTAL DAILY DOSE: 220 MG  UNIT DOSE: 220 MG
     Route: 048
     Dates: start: 20100905, end: 20100901
  3. GLUCOSAMINE SULFATE [Concomitant]
     Route: 065
  4. ASCORBIC ACID [Concomitant]
     Route: 065
  5. BULBERRY WITH LUTEIN [Concomitant]
     Route: 065
  6. VITAMIN D [Concomitant]
     Route: 065
  7. EYE DROPS FOR GLAUCOMA [Concomitant]
     Route: 065
  8. CHILDRE'S VITAMINS [Concomitant]
     Route: 065
  9. CALCIUM [Concomitant]
     Route: 065
  10. TUMERIC [Concomitant]
     Route: 065

REACTIONS (4)
  - FOREIGN BODY [None]
  - NAUSEA [None]
  - OROPHARYNGEAL DISCOMFORT [None]
  - PAIN IN EXTREMITY [None]
